FAERS Safety Report 23848712 (Version 1)
Quarter: 2024Q2

REPORT INFORMATION
  Report Type: Spontaneous
  Country: US (occurrence: US)
  Receive Date: 20240513
  Receipt Date: 20240513
  Transmission Date: 20240716
  Serious: No
  Sender: FDA-Public Use
  Company Number: US-LEX-000256

PATIENT
  Age: 87 Year
  Sex: Male

DRUGS (1)
  1. INPEFA [Suspect]
     Active Substance: SOTAGLIFLOZIN
     Indication: Product used for unknown indication
     Route: 048

REACTIONS (3)
  - Fatigue [Unknown]
  - Executive dysfunction [Unknown]
  - Somnolence [Unknown]

NARRATIVE: CASE EVENT DATE: 20240401
